FAERS Safety Report 19795308 (Version 1)
Quarter: 2021Q3

REPORT INFORMATION
  Report Type: Spontaneous
  Country: US (occurrence: US)
  Receive Date: 20210903
  Receipt Date: 20210903
  Transmission Date: 20211014
  Serious: No
  Sender: FDA-Public Use
  Company Number: None

PATIENT
  Age: 79 Year
  Sex: Male
  Weight: 97.5 kg

DRUGS (1)
  1. DARZALEX [Suspect]
     Active Substance: DARATUMUMAB
     Indication: PLASMA CELL MYELOMA
     Dosage: ?          OTHER FREQUENCY:DAILY X2;?
     Route: 041
     Dates: start: 20210826

REACTIONS (5)
  - Cough [None]
  - Infusion related reaction [None]
  - Chills [None]
  - Increased upper airway secretion [None]
  - Feeling cold [None]

NARRATIVE: CASE EVENT DATE: 20210826
